FAERS Safety Report 6401393-6 (Version None)
Quarter: 2009Q4

REPORT INFORMATION
  Report Type: 
  Country: None (occurrence: None)
  Receive Date: 20091015
  Receipt Date: 20071008
  Transmission Date: 20100525
  Serious: Yes (Disabling)
  Sender: FDA-Public Use
  Company Number: US-ASTRAZENECA-2006UW08202

PATIENT
  Sex: Female
  Weight: 97.5 kg

DRUGS (8)
  1. SEROQUEL [Suspect]
     Indication: SLEEP DISORDER
     Dosage: 200 MG, 300 MG FLUCTUATING
     Route: 048
     Dates: start: 20041201
  2. DEPAKOTE [Concomitant]
     Dosage: 500 TO 1500 MG
     Dates: start: 20041202
  3. TRAZODONE [Concomitant]
     Dates: start: 20041221
  4. GLYBURIDE [Concomitant]
     Dates: start: 20060403
  5. METFORMIN HYDROCHLORIDE [Concomitant]
     Dates: start: 20060403
  6. ACTOS [Concomitant]
     Dates: start: 20060403
  7. EFFEXOR XR [Concomitant]
     Dates: start: 20031006, end: 20041201
  8. AMBIEN [Concomitant]
     Dosage: 20 MG AT BEDTIME AS NEEDED
     Dates: start: 20041201

REACTIONS (1)
  - ILL-DEFINED DISORDER [None]
